FAERS Safety Report 12155451 (Version 1)
Quarter: 2016Q1

REPORT INFORMATION
  Report Type: Spontaneous
  Country: IN (occurrence: IN)
  Receive Date: 20160307
  Receipt Date: 20160307
  Transmission Date: 20160526
  Serious: Yes (Hospitalization, Other)
  Sender: FDA-Public Use
  Company Number: IN-IMPAX LABORATORIES, INC-2016-IPXL-00209

PATIENT
  Age: 55 Year
  Sex: Male

DRUGS (3)
  1. DEXAMETHASONE. [Concomitant]
     Active Substance: DEXAMETHASONE
     Indication: PRODUCT USED FOR UNKNOWN INDICATION
     Dosage: 8 MG, UNK
     Route: 065
  2. PHENYTOIN CHEWABLE [Suspect]
     Active Substance: PHENYTOIN
     Dosage: UNDILUTED 100 MG
     Route: 065
  3. PHENYTOIN CHEWABLE [Suspect]
     Active Substance: PHENYTOIN
     Indication: SEIZURE
     Dosage: 300 MG (SINGLE NIGHT DOSE), DAILY
     Route: 065

REACTIONS (2)
  - Gangrene [Unknown]
  - Incorrect route of drug administration [Unknown]
